FAERS Safety Report 9536582 (Version 1)
Quarter: 2013Q2

REPORT INFORMATION
  Report Type: Spontaneous
  Country: US (occurrence: None)
  Receive Date: 20130517
  Receipt Date: 20130517
  Transmission Date: 20140414
  Serious: Yes (Other)
  Sender: FDA-Public Use
  Company Number: 1000043316

PATIENT
  Age: 42 Year
  Sex: Female

DRUGS (4)
  1. VIIBRYD [Suspect]
     Indication: DEPRESSION
     Dosage: 10MG, (10MG, 1 IN 1 D) ORAL
     Route: 048
     Dates: start: 20130307
  2. TRAZODONE (TRAZONDONE) (TRAZODONE) [Concomitant]
  3. PAXIL (PAROXETINE HYDROCHLORIDE) (PAROXETINE HYDROCHLORIDE) [Concomitant]
  4. PRISTIQ (DESVENLAFAXINE SUCCINATE) (DESVENLAFAXINE SUCCINATE) [Concomitant]

REACTIONS (1)
  - Paraesthesia [None]
